FAERS Safety Report 24094070 (Version 1)
Quarter: 2024Q3

REPORT INFORMATION
  Report Type: Spontaneous
  Country: FR (occurrence: FR)
  Receive Date: 20240716
  Receipt Date: 20240716
  Transmission Date: 20241017
  Serious: Yes (Other)
  Sender: AUROBINDO
  Company Number: FR-AFSSAPS-BS2024000403

PATIENT
  Age: 61 Year
  Sex: Female
  Weight: 54 kg

DRUGS (2)
  1. PANTOPRAZOLE SODIUM [Suspect]
     Active Substance: PANTOPRAZOLE SODIUM
     Indication: Gastric ulcer
     Dosage: 20 MILLIGRAM, ONCE A DAY
     Route: 048
     Dates: start: 20240620
  2. ZOLEDRONIC ACID [Suspect]
     Active Substance: ZOLEDRONIC ACID
     Indication: Osteoporosis
     Dosage: 5 MILLIGRAM
     Route: 042
     Dates: start: 20240621, end: 20240621

REACTIONS (1)
  - Uveitis [Recovering/Resolving]

NARRATIVE: CASE EVENT DATE: 20240624
